FAERS Safety Report 24698700 (Version 1)
Quarter: 2024Q4

REPORT INFORMATION
  Report Type: Spontaneous
  Country: US (occurrence: US)
  Receive Date: 20241204
  Receipt Date: 20241204
  Transmission Date: 20250115
  Serious: Yes (Other)
  Sender: STRIDES
  Company Number: US-STRIDES ARCOLAB LIMITED-2023SP016683

PATIENT
  Age: 18 Year
  Sex: Female

DRUGS (5)
  1. GABAPENTIN [Suspect]
     Active Substance: GABAPENTIN
     Indication: Vulvovaginal pain
     Dosage: UNK
     Route: 048
  2. TIZANIDINE [Suspect]
     Active Substance: TIZANIDINE
     Indication: Vulvovaginal pain
     Dosage: UNK
     Route: 065
  3. DULOXETINE [Suspect]
     Active Substance: DULOXETINE
     Indication: Vulvovaginal pain
     Dosage: UNK
     Route: 065
  4. DIAZEPAM [Suspect]
     Active Substance: DIAZEPAM
     Indication: Vulvovaginal pain
     Dosage: UNK, SUPPOSITORY
     Route: 054
  5. ESTROGENS\TESTOSTERONE [Suspect]
     Active Substance: ESTROGENS\TESTOSTERONE
     Indication: Vulvovaginal pain
     Dosage: UNK
     Route: 061

REACTIONS (2)
  - Therapy non-responder [Unknown]
  - Off label use [Unknown]
